FAERS Safety Report 6430400-X (Version None)
Quarter: 2009Q4

REPORT INFORMATION
  Report Type: 
  Country: None (occurrence: None)
  Receive Date: 20091106
  Receipt Date: 20091026
  Transmission Date: 20100525
  Serious: Yes (Life-Threatening)
  Sender: FDA-Public Use
  Company Number: JP-PFIZER INC-2009290149

PATIENT
  Age: 50 Year
  Sex: Female

DRUGS (3)
  1. VFEND [Suspect]
     Indication: FEBRILE NEUTROPENIA
     Dosage: 370 MG, 2X/DAY
     Route: 042
     Dates: start: 20091022, end: 20091022
  2. VFEND [Suspect]
     Dosage: 200 MG, 2X/DAY
     Route: 042
     Dates: start: 20091023
  3. RETINOIC ACID [Suspect]
     Indication: ACUTE MYELOID LEUKAEMIA
     Route: 048

REACTIONS (1)
  - RETINOIC ACID SYNDROME [None]
